FAERS Safety Report 7062281-8 (Version None)
Quarter: 2010Q4

REPORT INFORMATION
  Report Type: 
  Country: None (occurrence: None)
  Receive Date: 20101026
  Receipt Date: 20090708
  Transmission Date: 20110411
  Serious: Yes (Other)
  Sender: FDA-Public Use
  Company Number: CHNY2009CH02755

PATIENT
  Age: 32 Year
  Sex: Female
  Weight: 75 kg

DRUGS (14)
  1. TAVEGYL (NCH) [Suspect]
     Indication: PROPHYLAXIS
     Dosage: 2 MG, UNK
     Dates: start: 20090113, end: 20090205
  2. CISPLATIN [Suspect]
     Indication: CERVIX CARCINOMA
     Dosage: 140 MG
     Dates: start: 20090113, end: 20090205
  3. PACLITAXEL [Suspect]
     Indication: CERVIX CARCINOMA
     Dosage: 330 MG
     Dates: start: 20090113, end: 20090205
  4. DEXAMETHASONE [Suspect]
     Dosage: 20 MG
     Dates: start: 20090112, end: 20090205
  5. ZOFRAN [Suspect]
     Indication: PROPHYLAXIS
     Dosage: 8 MG
     Dates: start: 20090113, end: 20090205
  6. ZOFRAN [Suspect]
     Indication: NAUSEA
     Dosage: 8 MG, QD
  7. ZOFRAN [Suspect]
     Indication: VOMITING
  8. ZANTIC [Suspect]
     Indication: PROPHYLAXIS
     Dosage: 50 MG
     Dates: start: 20090113, end: 20090205
  9. CELESTONE/SCH/ [Suspect]
     Dosage: 12 MG
     Dates: start: 20090112, end: 20090113
  10. SOLU-MEDROL [Suspect]
     Indication: PROPHYLAXIS
     Dosage: 125 MG
     Dates: start: 20090113, end: 20090205
  11. PRIMPERAN /SCH/ [Suspect]
     Indication: NAUSEA
     Dosage: 10 MG, FOUR TIMES DAILY
  12. PRIMPERAN /SCH/ [Suspect]
     Indication: VOMITING
  13. LASIX [Concomitant]
     Dosage: 20 MG, PRN
  14. TEMESTA [Concomitant]
     Indication: SEDATIVE THERAPY
     Dosage: 1 MG, PRN

REACTIONS (3)
  - CAESAREAN SECTION [None]
  - DRUG EXPOSURE DURING PREGNANCY [None]
  - PREMATURE LABOUR [None]
